FAERS Safety Report 17514506 (Version 3)
Quarter: 2020Q2

REPORT INFORMATION
  Report Type: Report from Study
  Country: None (occurrence: BE)
  Receive Date: 20200307
  Receipt Date: 20200501
  Transmission Date: 20200713
  Serious: Yes (Hospitalization)
  Sender: FDA-Public Use
  Company Number: BE-ABBVIE-20K-013-3306149-00

PATIENT
  Sex: Male
  Weight: 78 kg

DRUGS (6)
  1. DUODOPA [Suspect]
     Active Substance: CARBIDOPA\LEVODOPA
     Dosage: DOSES CONTINUOUSLY MONITORED AND ADAPTED
     Route: 050
     Dates: start: 20130712, end: 20180806
  2. DUODOPA [Suspect]
     Active Substance: CARBIDOPA\LEVODOPA
     Dosage: MD= 4.1ML, CD= 4ML/HR DURING 16HRS, ED= 4ML
     Route: 050
     Dates: start: 20190711, end: 20190716
  3. DUODOPA [Suspect]
     Active Substance: CARBIDOPA\LEVODOPA
     Dosage: MD= 4.1ML, CD= 4.5ML/HR DURING 16HRS, ED= 4ML
     Route: 050
     Dates: start: 20180806, end: 20190711
  4. DUODOPA [Suspect]
     Active Substance: CARBIDOPA\LEVODOPA
     Dosage: MD= 4.1ML, CD= 3.8ML/HR DURING 16HRS, ED= 4ML
     Route: 050
     Dates: start: 20190716, end: 20200207
  5. DUODOPA [Suspect]
     Active Substance: CARBIDOPA\LEVODOPA
     Indication: PARKINSON^S DISEASE
     Dosage: MD= 10ML, CD= 4.1ML/HR DURING 16HRS, ED= 4ML
     Route: 050
     Dates: start: 20130527, end: 20130712
  6. DUODOPA [Suspect]
     Active Substance: CARBIDOPA\LEVODOPA
     Dosage: MD= 3.1ML, CD= 3.6ML/HR DURING 16HRS, ED= 4ML
     Route: 050
     Dates: start: 20200207

REACTIONS (2)
  - Pulmonary embolism [Unknown]
  - Pneumonia [Unknown]

NARRATIVE: CASE EVENT DATE: 2020
